FAERS Safety Report 24032867 (Version 1)
Quarter: 2024Q3

REPORT INFORMATION
  Report Type: Spontaneous
  Country: FR (occurrence: FR)
  Receive Date: 20240701
  Receipt Date: 20240701
  Transmission Date: 20241017
  Serious: Yes (Hospitalization, Other)
  Sender: SANOFI AVENTIS
  Company Number: None

PATIENT
  Age: 74 Year
  Sex: Male
  Weight: 70.5 kg

DRUGS (1)
  1. ARAVA [Suspect]
     Active Substance: LEFLUNOMIDE
     Indication: Psoriatic arthropathy
     Dosage: 20 MG, QD
     Route: 048
     Dates: start: 20180101, end: 20240324

REACTIONS (1)
  - Hepatitis [Recovering/Resolving]

NARRATIVE: CASE EVENT DATE: 20240321
